FAERS Safety Report 20303919 (Version 1)
Quarter: 2022Q1

REPORT INFORMATION
  Report Type: Other
  Country: FR (occurrence: None)
  Receive Date: 20220106
  Receipt Date: 20220106
  Transmission Date: 20220424
  Serious: Yes (Death, Other)
  Sender: FDA-Public Use
  Company Number: FR-ROCHE-2992523

PATIENT

DRUGS (4)
  1. ATEZOLIZUMAB [Suspect]
     Active Substance: ATEZOLIZUMAB
     Indication: Neoplasm malignant
     Route: 065
  2. NIVOLUMAB [Suspect]
     Active Substance: NIVOLUMAB
     Indication: Neoplasm malignant
     Route: 065
  3. PEMBROLIZUMAB [Suspect]
     Active Substance: PEMBROLIZUMAB
     Indication: Neoplasm malignant
     Route: 065
  4. DURVALUMAB [Suspect]
     Active Substance: DURVALUMAB
     Indication: Neoplasm malignant
     Route: 065

REACTIONS (25)
  - Death [Fatal]
  - Endocrine disorder [Unknown]
  - Hypothalamic pituitary adrenal axis suppression [Unknown]
  - Pancreatic disorder [Unknown]
  - Thyroid disorder [Unknown]
  - Skin disorder [Unknown]
  - Mucosal disorder [Unknown]
  - Rheumatic disorder [Unknown]
  - Arthropathy [Unknown]
  - Muscle disorder [Unknown]
  - Liver disorder [Unknown]
  - Gastrointestinal disorder [Unknown]
  - Lung disorder [Unknown]
  - Cardiovascular disorder [Unknown]
  - Renal disorder [Unknown]
  - Blood disorder [Unknown]
  - Electrolyte imbalance [Unknown]
  - Immune system disorder [Unknown]
  - Nervous system disorder [Unknown]
  - Mental disorder [Unknown]
  - Respiratory disorder [Unknown]
  - Taste disorder [Unknown]
  - Sexual dysfunction [Unknown]
  - Tooth disorder [Unknown]
  - Infection [Unknown]
